FAERS Safety Report 6961827-5 (Version None)
Quarter: 2010Q3

REPORT INFORMATION
  Report Type: 
  Country: None (occurrence: None)
  Receive Date: 20100902
  Receipt Date: 20100830
  Transmission Date: 20110219
  Serious: Yes (Other)
  Sender: FDA-Public Use
  Company Number: US-ASTRAZENECA-2008UW01179

PATIENT
  Age: 18447 Day
  Sex: Male
  Weight: 81.6 kg

DRUGS (12)
  1. SEROQUEL [Suspect]
     Indication: ANXIETY
     Dosage: 200 MG TO 400 MG
     Route: 048
     Dates: start: 20050501, end: 20071201
  2. SEROQUEL [Suspect]
     Indication: DEPRESSION
     Dosage: 200 MG TO 400 MG
     Route: 048
     Dates: start: 20050501, end: 20071201
  3. SEROQUEL [Suspect]
     Indication: BIPOLAR DISORDER
     Dosage: 200 MG TO 400 MG
     Route: 048
     Dates: start: 20050501, end: 20071201
  4. SEROQUEL [Suspect]
     Dosage: 100-200 MG
     Route: 048
     Dates: start: 20050510
  5. SEROQUEL [Suspect]
     Dosage: 100-200 MG
     Route: 048
     Dates: start: 20050510
  6. SEROQUEL [Suspect]
     Dosage: 100-200 MG
     Route: 048
     Dates: start: 20050510
  7. DEPAKOTE ER [Concomitant]
     Dosage: 200-250 MG
     Dates: start: 20050510
  8. LEXAPRO [Concomitant]
     Indication: ANXIETY
     Dosage: 10-20 MG
     Dates: start: 20040715
  9. LEXAPRO [Concomitant]
     Indication: DEPRESSION
     Dosage: 10-20 MG
     Dates: start: 20040715
  10. CRESTOR [Concomitant]
     Dosage: 10 MG DISPENSED
     Dates: start: 20060426
  11. PREVACID [Concomitant]
     Dosage: 30 MG DISPENSED
     Dates: start: 20060601
  12. GEODON [Concomitant]

REACTIONS (4)
  - BLOOD GLUCOSE INCREASED [None]
  - CARDIAC DISORDER [None]
  - DIABETIC COMPLICATION [None]
  - TYPE 2 DIABETES MELLITUS [None]
